FAERS Safety Report 8590780-6 (Version None)
Quarter: 2012Q3

REPORT INFORMATION
  Report Type: 
  Country: None (occurrence: None)
  Receive Date: 20120813
  Receipt Date: 20120802
  Transmission Date: 20120928
  Serious: Yes (Hospitalization, Other)
  Sender: FDA-Public Use
  Company Number: US-009507513-1203USA01842

PATIENT

DRUGS (2)
  1. RALOXIFENE HYDROCHLORIDE [Concomitant]
     Indication: OSTEOPOROSIS
     Dosage: UNK
     Dates: end: 20060101
  2. FOSAMAX [Suspect]
     Indication: OSTEOPOROSIS
     Dosage: 70 MG, UNK
     Route: 048
     Dates: start: 19960101, end: 20100801

REACTIONS (5)
  - FEMUR FRACTURE [None]
  - ASTHMA [None]
  - DEVICE FAILURE [None]
  - ORAL SURGERY [None]
  - DENTAL PROSTHESIS PLACEMENT [None]
